FAERS Safety Report 22100859 (Version 1)
Quarter: 2023Q1

REPORT INFORMATION
  Report Type: Other
  Country: GB (occurrence: GB)
  Receive Date: 20230316
  Receipt Date: 20230316
  Transmission Date: 20230417
  Serious: Yes (Hospitalization, Other)
  Sender: FDA-Public Use
  Company Number: GB-CELLTRION INC.-2023GB005426

PATIENT

DRUGS (3)
  1. TRASTUZUMAB [Suspect]
     Active Substance: TRASTUZUMAB
     Indication: Metastatic neoplasm
  2. DOCETAXEL [Suspect]
     Active Substance: DOCETAXEL
     Indication: Metastatic neoplasm
  3. PERTUZUMAB [Suspect]
     Active Substance: PERTUZUMAB
     Indication: Metastatic neoplasm

REACTIONS (3)
  - Pyrexia [Unknown]
  - Vascular device infection [Unknown]
  - Maternal exposure timing unspecified [Unknown]
